FAERS Safety Report 10080361 (Version 1)
Quarter: 2014Q2

REPORT INFORMATION
  Report Type: Report from Study
  Country: US (occurrence: US)
  Receive Date: 20140415
  Receipt Date: 20140415
  Transmission Date: 20141212
  Serious: Yes (Other)
  Sender: FDA-Public Use
  Company Number: US-ABBVIE-14P-163-1223932-00

PATIENT
  Sex: Male
  Weight: 113.5 kg

DRUGS (9)
  1. ANDROGEL [Suspect]
     Indication: BLOOD TESTOSTERONE DECREASED
     Route: 061
     Dates: start: 2011
  2. ANDROGEL [Suspect]
     Dosage: INCREASED TO FOUR PUMPS
     Route: 061
     Dates: start: 2013, end: 2013
  3. ANDROGEL [Suspect]
     Route: 061
     Dates: start: 201403
  4. JALYN [Suspect]
     Indication: BENIGN PROSTATIC HYPERPLASIA
     Dates: start: 2013, end: 201310
  5. JALYN [Suspect]
     Indication: PROSTATOMEGALY
  6. REGULAR INSULIN NOVO NORDISK [Concomitant]
     Indication: DIABETES MELLITUS
  7. VERAPAMIL [Concomitant]
     Indication: PRODUCT USED FOR UNKNOWN INDICATION
  8. UNKNOWN BLOOD PRESSURE MEDICATION [Concomitant]
     Indication: BLOOD PRESSURE
  9. AVODART [Concomitant]
     Indication: PRODUCT USED FOR UNKNOWN INDICATION
     Dates: start: 201310

REACTIONS (6)
  - Atrial fibrillation [Recovered/Resolved]
  - Prostatomegaly [Not Recovered/Not Resolved]
  - Urinary straining [Recovered/Resolved]
  - Breast pain [Recovered/Resolved]
  - Incorrect dose administered [Unknown]
  - Blood testosterone decreased [Not Recovered/Not Resolved]
